FAERS Safety Report 23982605 (Version 3)
Quarter: 2024Q3

REPORT INFORMATION
  Report Type: Spontaneous
  Country: IE (occurrence: IE)
  Receive Date: 20240617
  Receipt Date: 20240920
  Transmission Date: 20241016
  Serious: Yes (Hospitalization, Other)
  Sender: BAUSCH AND LOMB
  Company Number: None

PATIENT
  Age: 33 Year
  Sex: Male
  Weight: 77 kg

DRUGS (5)
  1. HYDROCORTISONE [Suspect]
     Active Substance: HYDROCORTISONE\HYDROCORTISONE ACETATE
     Indication: Dermatitis contact
     Dosage: APPLIED ONCE DAILY TO AFFECTED AREAS FOR 5 TO 7 DAYS. (1 % W/W)
     Route: 048
     Dates: start: 20240520, end: 20240524
  2. HYDROCORTISONE [Suspect]
     Active Substance: HYDROCORTISONE\HYDROCORTISONE ACETATE
     Indication: Dermatitis contact
     Dosage: APPLIED ONCE DAILY TO AFFECTED AREAS FOR 5 TO 7 DAYS. (1 % W/W)
     Route: 061
     Dates: start: 20240520, end: 20240524
  3. BETAMETHASONE\GENTAMICIN [Concomitant]
     Active Substance: BETAMETHASONE\GENTAMICIN
     Indication: Product used for unknown indication
     Route: 048
  4. NIZORAL [Concomitant]
     Active Substance: KETOCONAZOLE
     Indication: Product used for unknown indication
  5. MICONAZOLE NITRATE [Concomitant]
     Active Substance: MICONAZOLE NITRATE
     Indication: Product used for unknown indication
     Dosage: 2.0%W/W

REACTIONS (15)
  - Sinusitis [Recovering/Resolving]
  - Migraine [Recovered/Resolved]
  - Headache [Recovered/Resolved]
  - Nausea [Recovered/Resolved]
  - Vomiting [Recovered/Resolved]
  - Impaired work ability [Recovered/Resolved]
  - Photophobia [Recovered/Resolved]
  - Paranasal sinus discomfort [Recovered/Resolved]
  - Pectus excavatum [Unknown]
  - Condition aggravated [Unknown]
  - Pyrexia [Recovered/Resolved]
  - Pleurisy [Unknown]
  - Pain [Unknown]
  - Chest pain [Not Recovered/Not Resolved]
  - Cough [Recovered/Resolved]

NARRATIVE: CASE EVENT DATE: 20240524
